FAERS Safety Report 5027194-1 (Version None)
Quarter: 2006Q2

REPORT INFORMATION
  Report Type: 
  Country: None (occurrence: None)
  Receive Date: 20060501
  Receipt Date: 20060201
  Transmission Date: 20061013
  Serious: No
  Sender: FDA-Public Use
  Company Number: 200610651BWH

PATIENT
  Age: 65 Year
  Sex: Male
  Weight: 77.1115 kg

DRUGS (3)
  1. NEXAVAR [Suspect]
     Indication: RENAL CELL CARCINOMA STAGE UNSPECIFIED
     Dosage: 400 MG BID ORAL
     Route: 048
     Dates: start: 20060124, end: 20060206
  2. NEXAVAR [Suspect]
     Indication: RENAL CELL CARCINOMA STAGE UNSPECIFIED
     Dosage: 400 MG BID ORAL
     Route: 048
     Dates: start: 20060213
  3. DYAZIDE [Concomitant]

REACTIONS (16)
  - ALOPECIA [None]
  - DRY SKIN [None]
  - DYSPHONIA [None]
  - FLUSHING [None]
  - HEAD DISCOMFORT [None]
  - HEADACHE [None]
  - HYPERAESTHESIA [None]
  - PAIN IN EXTREMITY [None]
  - PAIN OF SKIN [None]
  - PARAESTHESIA [None]
  - PYREXIA [None]
  - RASH MACULO-PAPULAR [None]
  - RASH PRURITIC [None]
  - RHINALGIA [None]
  - SWELLING FACE [None]
  - URTICARIA GENERALISED [None]
